FAERS Safety Report 11061932 (Version 1)
Quarter: 2015Q2

REPORT INFORMATION
  Report Type: Spontaneous
  Country: None (occurrence: None)
  Receive Date: 20150414
  Receipt Date: 20150414
  Transmission Date: 20150821
  Serious: Yes (Other)
  Sender: FDA-Public Use
  Company Number: 1713747-2015-99906

PATIENT
  Age: 59 Year
  Sex: Female

DRUGS (15)
  1. TYLENOL [Concomitant]
     Active Substance: ACETAMINOPHEN
  2. CALCITRIOL. [Concomitant]
     Active Substance: CALCITRIOL
  3. LORTAB [Concomitant]
     Active Substance: ACETAMINOPHEN\HYDROCODONE BITARTRATE
  4. DELFLEX [Suspect]
     Active Substance: CALCIUM CHLORIDE\DEXTROSE MONOHYDRATE\MAGNESIUM CHLORIDE\SODIUM CHLORIDE\SODIUM LACTATE
     Indication: CHRONIC KIDNEY DISEASE
     Dosage: PERITONEAL DIALYSIS
     Dates: start: 20130417
  5. LIBERTY CYCLER CASSETTE [Concomitant]
     Active Substance: DEVICE
  6. NPH INSULIN [Concomitant]
     Active Substance: INSULIN BEEF
  7. NEPHRO [Concomitant]
  8. LIBERTY CYCLER [Concomitant]
     Active Substance: DEVICE
  9. MINOXIDIL. [Concomitant]
     Active Substance: MINOXIDIL
  10. CALCIUM CARBONATE. [Concomitant]
     Active Substance: CALCIUM CARBONATE
  11. TOPROL XL [Concomitant]
     Active Substance: METOPROLOL SUCCINATE
  12. FOLIC ACID. [Concomitant]
     Active Substance: FOLIC ACID
  13. ZOFRAN [Concomitant]
     Active Substance: ONDANSETRON HYDROCHLORIDE
  14. THIAMINE [Concomitant]
     Active Substance: THIAMINE
  15. CELEXA [Concomitant]
     Active Substance: CITALOPRAM HYDROBROMIDE

REACTIONS (1)
  - Peritonitis [None]

NARRATIVE: CASE EVENT DATE: 20130417
